FAERS Safety Report 4357323-4 (Version None)
Quarter: 2004Q2

REPORT INFORMATION
  Report Type: 
  Country: None (occurrence: None)
  Receive Date: 20040507
  Receipt Date: 20040402
  Transmission Date: 20050107
  Serious: Yes (Other)
  Sender: FDA-Public Use
  Company Number: KII-2004-0009975

PATIENT
  Age: 55 Year
  Sex: Male

DRUGS (1)
  1. OXYCODONE HCL [Suspect]

REACTIONS (4)
  - COMA [None]
  - NAUSEA [None]
  - RESPIRATORY DEPRESSION [None]
  - SELF-MEDICATION [None]
